FAERS Safety Report 18771842 (Version 2)
Quarter: 2021Q1

REPORT INFORMATION
  Report Type: Spontaneous
  Country: US (occurrence: US)
  Receive Date: 20210122
  Receipt Date: 20210129
  Transmission Date: 20210419
  Serious: No
  Sender: FDA-Public Use
  Company Number: US-SAGE-2021SAGE000004

PATIENT
  Age: 12 Year
  Sex: Male

DRUGS (1)
  1. ZULRESSO [Suspect]
     Active Substance: BREXANOLONE
     Indication: STATUS EPILEPTICUS
     Dosage: UNK
     Route: 042
     Dates: start: 20210113, end: 20210118

REACTIONS (4)
  - Product use issue [Recovered/Resolved]
  - Off label use [Recovered/Resolved]
  - Product administration error [Recovered/Resolved]
  - Product use in unapproved indication [Recovered/Resolved]

NARRATIVE: CASE EVENT DATE: 20210113
